FAERS Safety Report 10533172 (Version 1)
Quarter: 2014Q4

REPORT INFORMATION
  Report Type: Spontaneous
  Country: US (occurrence: None)
  Receive Date: 20141021
  Receipt Date: 20141021
  Transmission Date: 20150529
  Serious: Yes (Death)
  Sender: FDA-Public Use
  Company Number: None

PATIENT
  Age: 58 Year
  Sex: Male
  Weight: 74.39 kg

DRUGS (3)
  1. PERCOCET [Concomitant]
     Active Substance: ACETAMINOPHEN\OXYCODONE HYDROCHLORIDE
  2. ALPHANINE SD [Suspect]
     Active Substance: COAGULATION FACTOR IX HUMAN
     Indication: HAEMARTHROSIS
     Dosage: 3 VIALS 3X/W AND PRN BLEED
     Route: 042
     Dates: start: 20140711, end: 20140919
  3. FENTANYL TRANSDERMAL SYSTEM [Concomitant]
     Active Substance: FENTANYL

REACTIONS (3)
  - Overdose [None]
  - Wrong technique in drug usage process [None]
  - Respiratory depression [None]

NARRATIVE: CASE EVENT DATE: 20140920
